FAERS Safety Report 10450566 (Version 1)
Quarter: 2014Q3

REPORT INFORMATION
  Report Type: Spontaneous
  Country: FR (occurrence: FR)
  Receive Date: 20140912
  Receipt Date: 20140912
  Transmission Date: 20150326
  Serious: Yes (Hospitalization)
  Sender: FDA-Public Use
  Company Number: FR-SA-2014SA123543

PATIENT
  Age: 70 Year
  Sex: Male

DRUGS (8)
  1. ROVAMYCINE [Concomitant]
     Active Substance: SPIRAMYCIN
  2. TAZOCILLINE [Concomitant]
     Active Substance: PIPERACILLIN SODIUM\TAZOBACTAM SODIUM
  3. CIFLOX [Concomitant]
     Active Substance: CIPROFLOXACIN
  4. PREVISCAN [Concomitant]
     Active Substance: FLUINDIONE
  5. APROVEL [Suspect]
     Active Substance: IRBESARTAN
     Route: 065
     Dates: start: 201209, end: 201209
  6. TARGOCID [Suspect]
     Active Substance: TEICOPLANIN
     Route: 065
     Dates: start: 201209, end: 201209
  7. LOVENOX [Suspect]
     Active Substance: ENOXAPARIN SODIUM
     Route: 065
     Dates: start: 201209, end: 201209
  8. CLAFORAN [Concomitant]
     Active Substance: CEFOTAXIME SODIUM

REACTIONS (1)
  - Drug reaction with eosinophilia and systemic symptoms [Recovered/Resolved]

NARRATIVE: CASE EVENT DATE: 20120911
